FAERS Safety Report 6732299-0 (Version None)
Quarter: 2010Q2

REPORT INFORMATION
  Report Type: 
  Country: None (occurrence: None)
  Receive Date: 20100519
  Receipt Date: 20100507
  Transmission Date: 20101027
  Serious: Yes (Death, Hospitalization)
  Sender: FDA-Public Use
  Company Number: US-ALEXION-A201000499

PATIENT
  Sex: Male

DRUGS (7)
  1. SOLIRIS [Suspect]
     Indication: PAROXYSMAL NOCTURNAL HAEMOGLOBINURIA
     Dosage: 600 MG, QW
     Route: 042
     Dates: start: 20071031, end: 20071114
  2. SOLIRIS [Suspect]
     Dosage: 900 MG, UNK
     Route: 042
     Dates: start: 20071121
  3. FOLIC ACID [Concomitant]
     Indication: PAROXYSMAL NOCTURNAL HAEMOGLOBINURIA
     Route: 048
  4. DIGOXIN [Concomitant]
     Indication: CORONARY ARTERY DISEASE
     Route: 048
  5. CORDARONE [Concomitant]
     Indication: CORONARY ARTERY DISEASE
     Route: 048
  6. MOBIC [Concomitant]
     Indication: ARTHRITIS
     Route: 048
  7. SYNTHROID [Concomitant]
     Indication: HYPOTHYROIDISM
     Route: 048

REACTIONS (2)
  - CHOLELITHIASIS [None]
  - SEPTIC SHOCK [None]
